FAERS Safety Report 5807633-6 (Version None)
Quarter: 2008Q3

REPORT INFORMATION
  Report Type: 
  Country: None (occurrence: None)
  Receive Date: 20080708
  Receipt Date: 20080624
  Transmission Date: 20090109
  Serious: Yes (Death, Hospitalization)
  Sender: FDA-Public Use
  Company Number: GBPFL-S-20080012

PATIENT
  Age: 63 Year
  Sex: Female
  Weight: 80 kg

DRUGS (3)
  1. NAVELBINE [Suspect]
     Indication: NON-SMALL CELL LUNG CANCER
     Dosage: 56 MG IV
     Route: 042
     Dates: start: 20070709, end: 20070716
  2. CISPLATIN [Suspect]
     Dosage: 149 MG IV
     Route: 042
     Dates: start: 20070709
  3. DIGOXIN [Concomitant]

REACTIONS (2)
  - GASTROINTESTINAL HYPOMOTILITY [None]
  - NEUTROPENIC SEPSIS [None]
